FAERS Safety Report 6208712-4 (Version None)
Quarter: 2009Q2

REPORT INFORMATION
  Report Type: 
  Country: None (occurrence: None)
  Receive Date: 20090522
  Receipt Date: 20090203
  Transmission Date: 20091009
  Serious: No
  Sender: FDA-Public Use
  Company Number: 8042312

PATIENT
  Age: 25 Year
  Sex: Female
  Weight: 61.3 kg

DRUGS (12)
  1. CIMZIA [Suspect]
     Indication: CROHN'S DISEASE
     Dosage: 400 MG SC : 100 MG SC
     Route: 058
     Dates: start: 20081101, end: 20090202
  2. CIMZIA [Suspect]
     Indication: CROHN'S DISEASE
     Dosage: 400 MG SC : 100 MG SC
     Route: 058
     Dates: start: 20090202
  3. XYZAL [Suspect]
     Dosage: 5 MG PRN PO
     Route: 048
  4. LEVOXYL [Concomitant]
  5. TOPROL-XL [Concomitant]
  6. SEASONALE [Concomitant]
  7. ASPIRIN [Concomitant]
  8. TRAMADOL [Concomitant]
  9. TORADOL [Concomitant]
  10. BENADRYL [Concomitant]
  11. FLORASTOR [Concomitant]
  12. ZOFRAN [Concomitant]

REACTIONS (3)
  - BODY TEMPERATURE INCREASED [None]
  - RASH [None]
  - UNDERDOSE [None]
